FAERS Safety Report 5919735-4 (Version None)
Quarter: 2008Q4

REPORT INFORMATION
  Report Type: 
  Country: None (occurrence: None)
  Receive Date: 20081015
  Receipt Date: 20081013
  Transmission Date: 20090506
  Serious: Yes (Death)
  Sender: FDA-Public Use
  Company Number: ZW-B.I. PHARMACEUTICALS,INC./RIDGEFIELD-2008-BP-15485BP

PATIENT
  Sex: Female

DRUGS (2)
  1. VIRAMUNE [Suspect]
     Dates: start: 20080522, end: 20080929
  2. COMBIVIR [Suspect]
     Dates: start: 20080522, end: 20080929

REACTIONS (3)
  - DEATH [None]
  - MALARIA [None]
  - UPPER RESPIRATORY TRACT INFECTION [None]
